FAERS Safety Report 7367391-3 (Version None)
Quarter: 2011Q1

REPORT INFORMATION
  Report Type: 
  Country: None (occurrence: None)
  Receive Date: 20110322
  Receipt Date: 20110223
  Transmission Date: 20110831
  Serious: No
  Sender: FDA-Public Use
  Company Number: US-B.I. PHARMACEUTICALS,INC./RIDGEFIELD-2011-BP-06725BP

PATIENT
  Sex: Female

DRUGS (21)
  1. ASPIRIN [Concomitant]
     Indication: PROPHYLAXIS
     Dosage: 81 MG
     Route: 048
  2. LEVOXYL [Concomitant]
     Indication: HYPOTHYROIDISM
     Dosage: 0.05 MG
     Route: 048
  3. BIOCARDIOZYME FORTE [Concomitant]
     Indication: ROUTINE HEALTH MAINTENANCE
     Route: 048
     Dates: start: 20060101
  4. NAMENDA [Concomitant]
     Indication: PROPHYLAXIS
     Dosage: 20 MG
     Route: 048
  5. ASCORBIC ACID [Concomitant]
     Indication: ROUTINE HEALTH MAINTENANCE
     Dosage: 2000 MG
     Route: 048
  6. GET SMART BRAIN FORMULA [Concomitant]
     Indication: PROPHYLAXIS
     Route: 048
  7. THYROPATH [Concomitant]
     Indication: ROUTINE HEALTH MAINTENANCE
     Route: 060
  8. OMEGA XL [Concomitant]
     Indication: ROUTINE HEALTH MAINTENANCE
     Route: 048
  9. ARICEPT [Concomitant]
     Indication: PROPHYLAXIS
     Dosage: 5 MG
     Route: 048
  10. ZOLOFT [Concomitant]
     Indication: DEPRESSION
     Dosage: 50 MG
     Route: 048
  11. MACROBID [Concomitant]
     Indication: PROPHYLAXIS
     Dosage: 100 MG
     Route: 048
  12. MULTI-VITAMIN [Concomitant]
     Indication: ROUTINE HEALTH MAINTENANCE
     Route: 048
  13. PRADAXA [Suspect]
     Indication: ATRIAL FIBRILLATION
     Dosage: 300 MG
     Route: 048
     Dates: start: 20110219
  14. PREVAGEN [Concomitant]
     Indication: PROPHYLAXIS
     Route: 048
  15. LEXAPRO [Concomitant]
     Indication: DEPRESSION
     Dosage: 10 MG
     Route: 048
  16. DIGOXIN [Concomitant]
     Indication: PROPHYLAXIS
     Dosage: 0.125 MG
     Route: 048
  17. PIRACETAM [Concomitant]
     Indication: PROPHYLAXIS
     Dosage: 2400 MG
     Route: 048
     Dates: start: 20060101
  18. ADRENOPATH [Concomitant]
     Indication: ROUTINE HEALTH MAINTENANCE
     Route: 060
  19. METOPROLOL [Concomitant]
     Indication: HYPERTENSION
     Dosage: 100 MG
     Route: 048
  20. FUROSEMIDE [Concomitant]
     Dosage: 40 MG
     Route: 048
  21. DIGESTINE [Concomitant]
     Indication: ERUCTATION
     Route: 048

REACTIONS (8)
  - ABDOMINAL PAIN LOWER [None]
  - JOINT SWELLING [None]
  - ERYTHEMA [None]
  - ARTHRALGIA [None]
  - AGITATION [None]
  - OESOPHAGEAL PAIN [None]
  - OROPHARYNGEAL PAIN [None]
  - FEELING COLD [None]
